FAERS Safety Report 9931993 (Version 1)
Quarter: 2014Q1

REPORT INFORMATION
  Report Type: Spontaneous
  Country: US (occurrence: None)
  Receive Date: 20140226
  Receipt Date: 20140226
  Transmission Date: 20141002
  Serious: No
  Sender: FDA-Public Use
  Company Number: SYM-2013-03416

PATIENT
  Age: 76 Year
  Sex: Female

DRUGS (1)
  1. CARDIZEM CD [Suspect]
     Indication: HYPERTENSION
     Dosage: 1 IN 1 D, ORAL
     Route: 048
     Dates: start: 20130329

REACTIONS (4)
  - Alopecia [None]
  - Oedema peripheral [None]
  - Joint swelling [None]
  - Skin discolouration [None]
